FAERS Safety Report 6403187-4 (Version None)
Quarter: 2009Q4

REPORT INFORMATION
  Report Type: 
  Country: None (occurrence: None)
  Receive Date: 20091013
  Receipt Date: 20090930
  Transmission Date: 20100525
  Serious: Yes (Other)
  Sender: FDA-Public Use
  Company Number: 2009SP028124

PATIENT
  Age: 71 Year
  Sex: Female

DRUGS (4)
  1. CELESTONE [Suspect]
     Indication: SCIATICA
     Dates: start: 20090101
  2. URISPAS (CON.) [Concomitant]
  3. SIMVASTATIN (CON.) [Concomitant]
  4. COLPOTROPHINE (CON.) [Concomitant]

REACTIONS (3)
  - AMNESIA [None]
  - FALL [None]
  - TREMOR [None]
